FAERS Safety Report 4490292-5 (Version None)
Quarter: 2004Q4

REPORT INFORMATION
  Report Type: 
  Country: None (occurrence: None)
  Receive Date: 20041101
  Receipt Date: 20041026
  Transmission Date: 20050328
  Serious: Yes (Hospitalization)
  Sender: FDA-Public Use
  Company Number: DE-MERCK-0410DEU00705

PATIENT
  Age: 39 Year
  Sex: Male

DRUGS (4)
  1. VIOXX [Suspect]
     Indication: PSORIASIS
     Route: 048
     Dates: start: 19990101, end: 20040101
  2. ETANERCEPT [Concomitant]
     Route: 048
  3. ESOMEPRAZOLE SODIUM [Concomitant]
     Route: 051
  4. [THERAPY UNSPECIFIED] [Concomitant]
     Route: 065

REACTIONS (2)
  - PUPILS UNEQUAL [None]
  - SYNCOPE [None]
